FAERS Safety Report 11013886 (Version 2)
Quarter: 2015Q2

REPORT INFORMATION
  Report Type: Spontaneous
  Country: US (occurrence: US)
  Receive Date: 20150412
  Receipt Date: 20150525
  Transmission Date: 20150821
  Serious: No
  Sender: FDA-Public Use
  Company Number: US-JNJFOC-20121108180

PATIENT
  Age: 58 Year
  Sex: Female
  Weight: 66.23 kg

DRUGS (6)
  1. ELMIRON [Suspect]
     Active Substance: PENTOSAN POLYSULFATE SODIUM
     Indication: CYSTITIS INTERSTITIAL
     Route: 048
     Dates: start: 20121109, end: 20121110
  2. ENZYMES [Concomitant]
     Dosage: BEFORE MEALS
     Route: 065
     Dates: start: 1991
  3. CALCIUM [Concomitant]
     Active Substance: CALCIUM
     Route: 065
  4. VITAMIN [Concomitant]
     Active Substance: VITAMINS
     Indication: NUTRITIONAL SUPPLEMENTATION
     Dosage: BEFORE MEALS
     Route: 065
  5. VITAMIN [Concomitant]
     Active Substance: VITAMINS
     Indication: NUTRITIONAL SUPPLEMENTATION
     Dosage: BEFORE MEALS
     Route: 065
  6. OTHER THERAPEUTIC PRODUCTS [Concomitant]
     Active Substance: UNSPECIFIED INGREDIENT
     Route: 065

REACTIONS (6)
  - Flatulence [Recovered/Resolved]
  - Abdominal discomfort [Unknown]
  - Gastrooesophageal reflux disease [Recovered/Resolved]
  - Abnormal loss of weight [Unknown]
  - Pain [Unknown]
  - Drug prescribing error [Not Recovered/Not Resolved]

NARRATIVE: CASE EVENT DATE: 201211
